FAERS Safety Report 21664274 (Version 1)
Quarter: 2022Q4

REPORT INFORMATION
  Report Type: Report from Study
  Country: CA (occurrence: CA)
  Receive Date: 20221130
  Receipt Date: 20221130
  Transmission Date: 20230113
  Serious: Yes (Other)
  Sender: FDA-Public Use
  Company Number: CA-BAUSCH-BL-2022-025774

PATIENT
  Age: 64 Year
  Sex: Female

DRUGS (5)
  1. CONTRAVE [Suspect]
     Active Substance: BUPROPION HYDROCHLORIDE\NALTREXONE HYDROCHLORIDE
     Indication: Weight control
     Dosage: 90/8 MG, FIRST ATTEMPT
     Route: 048
     Dates: start: 2022, end: 2022
  2. CONTRAVE [Suspect]
     Active Substance: BUPROPION HYDROCHLORIDE\NALTREXONE HYDROCHLORIDE
     Dosage: 90/8 MG, 4 TABS/DAY (FIRST ATTEMPT)
     Route: 048
     Dates: start: 2022, end: 20221014
  3. CONTRAVE [Suspect]
     Active Substance: BUPROPION HYDROCHLORIDE\NALTREXONE HYDROCHLORIDE
     Dosage: 90/8 MG, 1 TAB AM/ 1 TAB PM (SECOND ATTEMPT)
     Route: 048
     Dates: start: 20221024, end: 20221026
  4. CONTRAVE [Suspect]
     Active Substance: BUPROPION HYDROCHLORIDE\NALTREXONE HYDROCHLORIDE
     Dosage: 90/8 MG, 2 TAB AM/ 1 TAB PM (SECOND ATTEMPT)
     Route: 048
     Dates: start: 20221027, end: 20221030
  5. CONTRAVE [Suspect]
     Active Substance: BUPROPION HYDROCHLORIDE\NALTREXONE HYDROCHLORIDE
     Dosage: 90/8 MG, 2 TABS AM/ 2 TAB PM (SECOND ATTEMPT)
     Route: 048
     Dates: start: 20221031

REACTIONS (4)
  - Labyrinthitis [Recovered/Resolved]
  - Dizziness [Recovered/Resolved]
  - Therapy interrupted [Unknown]
  - Drug titration error [Unknown]

NARRATIVE: CASE EVENT DATE: 20221014
